FAERS Safety Report 8803544 (Version 2)
Quarter: 2012Q4

REPORT INFORMATION
  Report Type: Report from Study
  Country: US (occurrence: US)
  Receive Date: 20120924
  Receipt Date: 20121101
  Transmission Date: 20130627
  Serious: Yes (Hospitalization, Other)
  Sender: FDA-Public Use
  Company Number: US-ACTELION-A-US2012-71363

PATIENT
  Age: 55 Year
  Sex: Female

DRUGS (2)
  1. TRACLEER [Suspect]
     Indication: PULMONARY ARTERIAL HYPERTENSION
     Dosage: UNK
     Route: 048
  2. ADCIRCA [Concomitant]

REACTIONS (14)
  - Sepsis [Recovering/Resolving]
  - Myocardial infarction [Recovering/Resolving]
  - Malaise [Recovering/Resolving]
  - Chills [Recovering/Resolving]
  - Dizziness [Recovering/Resolving]
  - Syncope [Recovering/Resolving]
  - Pyrexia [Recovering/Resolving]
  - Headache [Recovering/Resolving]
  - Diarrhoea [Recovering/Resolving]
  - Pneumonia [Recovering/Resolving]
  - Hypoxia [Recovering/Resolving]
  - Cardiac failure [Recovering/Resolving]
  - Urinary tract infection [Recovering/Resolving]
  - Fluid retention [Unknown]
